FAERS Safety Report 8470617-6 (Version None)
Quarter: 2012Q2

REPORT INFORMATION
  Report Type: 
  Country: None (occurrence: None)
  Receive Date: 20120627
  Receipt Date: 20120622
  Transmission Date: 20120825
  Serious: Yes (Death, Hospitalization)
  Sender: FDA-Public Use
  Company Number: PHHY2010MX42951

PATIENT
  Sex: Female

DRUGS (3)
  1. ZOLEDRONOC ACID [Suspect]
     Dosage: 5 MG / 100ML
     Route: 042
     Dates: start: 20090601
  2. ZOLEDRONOC ACID [Suspect]
     Indication: OSTEOPOROSIS
     Dosage: 5 MG / 100 ML
     Route: 042
     Dates: start: 20080101
  3. LOSARTAN POTASSIUM [Concomitant]
     Dosage: UNK UKN, ONCE A DAY

REACTIONS (3)
  - TERMINAL STATE [None]
  - FOOD AVERSION [None]
  - CARDIO-RESPIRATORY ARREST [None]
